FAERS Safety Report 10479996 (Version 2)
Quarter: 2015Q4

REPORT INFORMATION
  Report Type: Report from Study
  Country: FR (occurrence: FR)
  Receive Date: 20140929
  Receipt Date: 20151211
  Transmission Date: 20160304
  Serious: Yes (Hospitalization)
  Sender: FDA-Public Use
  Company Number: FR-ROCHE-1466680

PATIENT
  Sex: Female
  Weight: 74 kg

DRUGS (13)
  1. LASILIX [Suspect]
     Active Substance: FUROSEMIDE
     Indication: OEDEMA PERIPHERAL
     Dosage: ONGOING TREATMENT
     Route: 065
     Dates: start: 2003
  2. VICTAN [Concomitant]
     Active Substance: ETHYL LOFLAZEPATE
  3. THERALENE (FRANCE) [Suspect]
     Active Substance: TRIMEPRAZINE
     Indication: ANXIOLYTIC THERAPY
     Dosage: ONGOING TREATMENT
     Route: 065
     Dates: start: 2003
  4. RIBAVIRIN. [Suspect]
     Active Substance: RIBAVIRIN
     Indication: HEPATITIS C
     Dosage: ONGOING TREATMENT
     Route: 065
     Dates: start: 20140418
  5. ZANIDIP [Suspect]
     Active Substance: LERCANIDIPINE HYDROCHLORIDE
     Indication: HYPERTENSION
     Dosage: ONGOING TREATMENT
     Route: 065
     Dates: start: 2013
  6. ESIDREX [Suspect]
     Active Substance: HYDROCHLOROTHIAZIDE
     Indication: HYPERTENSION
     Dosage: ONGOING TREATMENT
     Route: 065
     Dates: start: 2013
  7. MEDIATENSYL [Suspect]
     Active Substance: URAPIDIL
     Indication: HYPERTENSION
     Dosage: ONGOING TREATMENT
     Route: 065
     Dates: start: 2013
  8. ALDACTONE [Suspect]
     Active Substance: SPIRONOLACTONE
     Indication: OEDEMA PERIPHERAL
     Dosage: ONGOING TREATMENT
     Route: 065
     Dates: start: 20140611
  9. NEORECORMON [Suspect]
     Active Substance: ERYTHROPOIETIN
     Indication: ANAEMIA
     Dosage: ONGOING TREATMENT
     Route: 065
     Dates: start: 2013
  10. SOFOSBUVIR [Suspect]
     Active Substance: SOFOSBUVIR
     Indication: HEPATITIS C
     Dosage: ONGOING TREATMENT
     Route: 065
     Dates: start: 20140418
  11. HYTACAND [Suspect]
     Active Substance: CANDESARTAN CILEXETIL\HYDROCHLOROTHIAZIDE
     Indication: HYPERTENSION
     Dosage: ONGOING TREATMENT
     Route: 065
     Dates: start: 2003
  12. TAHOR [Suspect]
     Active Substance: ATORVASTATIN CALCIUM
     Indication: HYPERCHOLESTEROLAEMIA
     Dosage: ONGOING TREATMENT
     Route: 065
     Dates: start: 201306
  13. PLAVIX [Suspect]
     Active Substance: CLOPIDOGREL BISULFATE
     Indication: ANTICOAGULANT THERAPY
     Dosage: ONGOING TREATMENT
     Route: 065
     Dates: start: 2013

REACTIONS (1)
  - Sciatica [Recovered/Resolved]
